FAERS Safety Report 6300543-X (Version None)
Quarter: 2009Q3

REPORT INFORMATION
  Report Type: 
  Country: None (occurrence: None)
  Receive Date: 20090806
  Receipt Date: 20090306
  Transmission Date: 20100115
  Serious: No
  Sender: FDA-Public Use
  Company Number: US-ABBOTT-09P-163-0561294-00

PATIENT
  Sex: Female
  Weight: 83.99 kg

DRUGS (8)
  1. DEPAKOTE ER [Suspect]
     Indication: INSOMNIA
     Dosage: QD
     Route: 048
     Dates: start: 20090304, end: 20090304
  2. VITAMIN [Concomitant]
     Indication: VITAMIN SUPPLEMENTATION
     Route: 048
  3. SYNTHROID [Concomitant]
     Indication: HYPOTHYROIDISM
     Route: 048
  4. DIOVAN [Concomitant]
     Indication: HYPERTENSION
     Route: 048
  5. AVANDIA [Concomitant]
     Indication: DIABETES MELLITUS
     Dosage: 4MG BID
     Route: 048
  6. LITHIUM CARBONATE [Concomitant]
     Indication: BIPOLAR DISORDER
     Dosage: 1 TAB QAM AND  1  1/2QHS
     Route: 048
  7. SEROQUEL [Concomitant]
     Indication: BIPOLAR DISORDER
     Dosage: QD AND PRN
     Route: 048
  8. KLONOPIN [Concomitant]
     Indication: BIPOLAR DISORDER
     Dosage: PT. TAKES 2/3 TAB
     Route: 048

REACTIONS (2)
  - FATIGUE [None]
  - SLUGGISHNESS [None]
